FAERS Safety Report 24815901 (Version 2)
Quarter: 2025Q3

REPORT INFORMATION
  Report Type: Spontaneous
  Country: US (occurrence: US)
  Receive Date: 20250107
  Receipt Date: 20250923
  Transmission Date: 20251021
  Serious: Yes (Other)
  Sender: ROCHE
  Company Number: US-BoehringerIngelheim-2024-BI-071171

PATIENT
  Age: 59 Year
  Sex: Female

DRUGS (6)
  1. ALTEPLASE [Suspect]
     Active Substance: ALTEPLASE
     Indication: Peritonitis
     Route: 065
  2. MEROPENEM [Concomitant]
     Active Substance: MEROPENEM
  3. VANCOMYCIN [Concomitant]
     Active Substance: VANCOMYCIN
  4. PIPERACILLIN AND TAZOBACTAM [Concomitant]
     Active Substance: PIPERACILLIN SODIUM\TAZOBACTAM SODIUM
     Indication: Klebsiella infection
  5. RIFAXIMIN [Concomitant]
     Active Substance: RIFAXIMIN
     Indication: Prophylaxis
  6. MIDODRINE [Concomitant]
     Active Substance: MIDODRINE
     Indication: Product used for unknown indication

REACTIONS (6)
  - Off label use [Unknown]
  - Leukocytosis [Unknown]
  - Septic shock [Not Recovered/Not Resolved]
  - Metastases to liver [Not Recovered/Not Resolved]
  - Metastases to lung [Not Recovered/Not Resolved]
  - Metastases to spleen [Not Recovered/Not Resolved]
